FAERS Safety Report 8448919-9 (Version None)
Quarter: 2012Q2

REPORT INFORMATION
  Report Type: 
  Country: None (occurrence: None)
  Receive Date: 20120619
  Receipt Date: 20120314
  Transmission Date: 20120825
  Serious: Yes (Hospitalization)
  Sender: FDA-Public Use
  Company Number: JP-GLAXOSMITHKLINE-B0789008A

PATIENT
  Sex: Female

DRUGS (16)
  1. CYMBALTA [Concomitant]
     Indication: BIPOLAR DISORDER
     Dosage: 20MG PER DAY
     Route: 048
     Dates: start: 20101207, end: 20110914
  2. CYMBALTA [Concomitant]
     Dosage: 40MG PER DAY
     Route: 048
     Dates: start: 20110915
  3. TIZANIDINE HYDROCHLORIDE [Concomitant]
     Indication: HYPOTONIA
     Dosage: 3MG PER DAY
     Route: 048
     Dates: start: 20111107, end: 20120229
  4. LAXOBERON [Concomitant]
     Indication: CONSTIPATION
     Route: 048
     Dates: start: 20110202
  5. LAMICTAL [Suspect]
     Dosage: 50MG PER DAY
     Route: 048
     Dates: start: 20120217, end: 20120220
  6. PRAMIPEXOLE DIHYDROCHLORIDE [Concomitant]
     Indication: AKATHISIA
     Dosage: .125MG PER DAY
     Route: 048
     Dates: start: 20110829
  7. JUVELA N [Concomitant]
     Indication: HYPERLIPIDAEMIA
     Dosage: 400MG PER DAY
     Route: 048
     Dates: start: 20101105
  8. LAMICTAL [Suspect]
     Indication: BIPOLAR DISORDER
     Dosage: 25MG PER DAY
     Route: 048
     Dates: start: 20120208, end: 20120216
  9. CLONAZEPAM [Concomitant]
     Indication: ANXIETY
     Dosage: 2MG PER DAY
     Route: 048
     Dates: start: 20110202
  10. LEXAPRO [Concomitant]
     Dosage: 20MG PER DAY
     Route: 048
     Dates: start: 20120127
  11. SELBEX [Concomitant]
     Dosage: 150MG PER DAY
     Route: 048
     Dates: start: 20111228
  12. CINAL [Concomitant]
     Indication: HYPERLIPIDAEMIA
     Dosage: 400MG PER DAY
     Route: 048
     Dates: start: 20101105
  13. LEXAPRO [Concomitant]
     Indication: BIPOLAR DISORDER
     Dosage: 10MG PER DAY
     Route: 048
     Dates: start: 20110914, end: 20120126
  14. PYDOXAL [Concomitant]
     Indication: HYPERLIPIDAEMIA
     Dosage: 20MG PER DAY
     Route: 048
     Dates: start: 20101105
  15. ZOLPIDEM [Concomitant]
     Indication: INSOMNIA
     Dosage: 10MG PER DAY
     Route: 048
     Dates: start: 20111107
  16. ROHYPNOL [Concomitant]
     Indication: INSOMNIA
     Dosage: 2MG PER DAY
     Route: 048
     Dates: start: 20111107

REACTIONS (19)
  - LYMPHOCYTE PERCENTAGE INCREASED [None]
  - ASPARTATE AMINOTRANSFERASE INCREASED [None]
  - ALANINE AMINOTRANSFERASE INCREASED [None]
  - LIP EROSION [None]
  - ERYTHEMA [None]
  - STEVENS-JOHNSON SYNDROME [None]
  - MONOCYTE PERCENTAGE INCREASED [None]
  - MONOCYTE PERCENTAGE DECREASED [None]
  - BLOOD ALKALINE PHOSPHATASE INCREASED [None]
  - DRUG ERUPTION [None]
  - PYREXIA [None]
  - C-REACTIVE PROTEIN INCREASED [None]
  - ERYTHEMA OF EYELID [None]
  - ORAL MUCOSA EROSION [None]
  - RASH [None]
  - NEUTROPHIL PERCENTAGE INCREASED [None]
  - WHITE BLOOD CELL COUNT INCREASED [None]
  - BLOOD LACTATE DEHYDROGENASE INCREASED [None]
  - OCULAR HYPERAEMIA [None]
